FAERS Safety Report 14315680 (Version 14)
Quarter: 2018Q3

REPORT INFORMATION
  Report Type: Report from Study
  Country: FR (occurrence: FR)
  Receive Date: 20171221
  Receipt Date: 20180925
  Transmission Date: 20181010
  Serious: Yes (Life-Threatening, Hospitalization, Other)
  Sender: FDA-Public Use
  Company Number: FR-MYLANLABS-2017M1079957

PATIENT
  Age: 57 Year
  Sex: Male
  Weight: 75 kg

DRUGS (23)
  1. FLUOROURACIL. [Suspect]
     Active Substance: FLUOROURACIL
     Indication: PANCREATIC NEUROENDOCRINE TUMOUR METASTATIC
     Dosage: CYCLIC, EVERY 14 DAYS
     Route: 042
     Dates: start: 20170210, end: 20170721
  2. FOLINIC ACID [Suspect]
     Active Substance: LEUCOVORIN
     Indication: PANCREATIC NEUROENDOCRINE TUMOUR METASTATIC
     Dosage: 1 CYCLE VERY 14 DAYS
     Route: 042
     Dates: start: 20170130, end: 20170723
  3. FOLINIC ACID [Suspect]
     Active Substance: LEUCOVORIN
     Indication: NEUROENDOCRINE TUMOUR
     Dosage: CYCLIC, EVERY 14 DAYS
     Route: 042
     Dates: start: 20170201, end: 20170721
  4. FOLINIC ACID [Suspect]
     Active Substance: LEUCOVORIN
     Dosage: CYCLIC, EVERY 14 DAYS (SIX CYCLES)
     Route: 042
     Dates: start: 20170210, end: 20170723
  5. OXALIPLATIN. [Suspect]
     Active Substance: OXALIPLATIN
     Dosage: UNK, CYCLE,EVERY 14 DAYS(SIX CYCLES)
     Route: 042
     Dates: start: 201702, end: 20170721
  6. FLUOROURACIL. [Suspect]
     Active Substance: FLUOROURACIL
     Dosage: CYCLIC, EVERY 14 DAYS
     Route: 042
     Dates: start: 20170210, end: 20170723
  7. FLUOROURACIL. [Suspect]
     Active Substance: FLUOROURACIL
     Dosage: UNK, CYCLE,EVERY 14 DAYS(SIX CYCLES)
     Route: 042
     Dates: start: 201702, end: 20170721
  8. FLUOROURACIL. [Suspect]
     Active Substance: FLUOROURACIL
     Dosage: UNK, CYCLIC (1 CYCLE EVERY 14 DAYS)
     Route: 042
     Dates: start: 20170724, end: 20171006
  9. XELODA [Concomitant]
     Active Substance: CAPECITABINE
     Indication: NEOPLASM PROGRESSION
     Dosage: UNK
     Route: 048
  10. SUTENT [Suspect]
     Active Substance: SUNITINIB MALATE
     Indication: PANCREATIC NEUROENDOCRINE TUMOUR METASTATIC
     Dosage: 37.5 MG, QD
     Dates: start: 20151207, end: 20170116
  11. FOLINIC ACID [Suspect]
     Active Substance: LEUCOVORIN
     Dosage: (1 CYCLE VERY 14 DAYS)
     Route: 042
     Dates: start: 20170724, end: 20171006
  12. FOLINIC ACID [Suspect]
     Active Substance: LEUCOVORIN
     Dosage: 1 CYCLE VERY 14 DAYS
     Route: 042
     Dates: start: 20170724, end: 20171001
  13. FOLINIC ACID [Suspect]
     Active Substance: LEUCOVORIN
     Dosage: UNK, CYCLIC (1 CYCLE VERY 14 DAYS)
     Route: 042
     Dates: start: 20170724, end: 20171006
  14. OXALIPLATIN. [Suspect]
     Active Substance: OXALIPLATIN
     Indication: NEUROENDOCRINE TUMOUR
     Dosage: CYCLE (EVERY 14 DAYS)
     Route: 042
     Dates: start: 20170210, end: 20170723
  15. OXALIPLATIN. [Suspect]
     Active Substance: OXALIPLATIN
     Dosage: UNK, CYCLIC, EVERY 14 DAYS (SIX CYCLES)
     Route: 042
     Dates: start: 20170210, end: 20170723
  16. XELODA [Concomitant]
     Active Substance: CAPECITABINE
     Indication: CHEMOTHERAPY
  17. FLUOROURACIL. [Suspect]
     Active Substance: FLUOROURACIL
     Indication: NEUROENDOCRINE TUMOUR
     Dosage: 1 CYCLE, EVERY 14 DAYS
     Route: 042
     Dates: start: 20170724, end: 201710
  18. INSULIN [Concomitant]
     Active Substance: INSULIN NOS
     Indication: TYPE 2 DIABETES MELLITUS
     Dosage: UNK
  19. CAPECITABINE. [Concomitant]
     Active Substance: CAPECITABINE
     Indication: NEOPLASM PROGRESSION
     Dosage: UNK
     Route: 048
  20. OXALIPLATIN. [Suspect]
     Active Substance: OXALIPLATIN
     Indication: PANCREATIC NEUROENDOCRINE TUMOUR METASTATIC
     Dosage: CYCLIC, EVERY 14 DAYS
     Route: 042
     Dates: start: 20170130, end: 20170723
  21. FLUOROURACIL. [Suspect]
     Active Substance: FLUOROURACIL
     Dosage: CYCLIC, EVERY 14 DAYS
     Route: 042
     Dates: start: 20170130, end: 20170723
  22. FLUOROURACIL. [Suspect]
     Active Substance: FLUOROURACIL
     Dosage: UNK, CYCLIC, EVERY 14 DAYS (SIX CYCLES)
     Route: 042
     Dates: start: 20170210, end: 20170723
  23. FOLINIC ACID [Suspect]
     Active Substance: LEUCOVORIN
     Dosage: UNK, CYCLE,EVERY 14 DAYS(SIX CYCLES)
     Route: 042
     Dates: start: 201702, end: 20170721

REACTIONS (13)
  - Diarrhoea [Recovered/Resolved]
  - Blood calcium abnormal [Not Recovered/Not Resolved]
  - Endocarditis [Recovered/Resolved]
  - Vomiting [Not Recovered/Not Resolved]
  - General physical health deterioration [Recovered/Resolved]
  - Hypoglycaemia [Recovered/Resolved]
  - Abdominal pain [Recovered/Resolved]
  - Hypercalcaemia [Not Recovered/Not Resolved]
  - Paraesthesia [Recovered/Resolved]
  - Sepsis [Recovered/Resolved]
  - Small intestinal obstruction [Recovered/Resolved]
  - Intestinal obstruction [Unknown]
  - Hypokalaemia [Not Recovered/Not Resolved]

NARRATIVE: CASE EVENT DATE: 2016
